FAERS Safety Report 12140450 (Version 3)
Quarter: 2016Q1

REPORT INFORMATION
  Report Type: Report from Study
  Country: CN (occurrence: CN)
  Receive Date: 20160303
  Receipt Date: 20160310
  Transmission Date: 20160526
  Serious: Yes (Death, Hospitalization)
  Sender: FDA-Public Use
  Company Number: CN-ROCHE-1716392

PATIENT
  Age: 65 Year
  Sex: Male
  Weight: 45 kg

DRUGS (4)
  1. TRASTUZUMAB [Suspect]
     Active Substance: TRASTUZUMAB
     Indication: HER-2 POSITIVE GASTRIC CANCER
     Dosage: LAST DOSE PRIOR TO SAE: 29/DEC/2015?LOADING DOSE AS PER PROTCOL : 8 MG/KG (ON DAY 1 OF 3 WEEK CYCLE)
     Route: 042
     Dates: start: 20151229
  2. DOCETAXEL. [Suspect]
     Active Substance: DOCETAXEL
     Indication: HER-2 POSITIVE GASTRIC CANCER
     Dosage: LAST DOSE PRIOR TO SAE: 29/DEC/2015?DOSE AS PER PROTOCOL: 60MG/M2 (ON DAY 1) EVERY 3 WEEKS FOR 6 CYC
     Route: 042
     Dates: start: 20151229
  3. NIFEDIPINE. [Concomitant]
     Active Substance: NIFEDIPINE
     Indication: HYPERTENSION
     Route: 065
     Dates: start: 2005, end: 20160108
  4. CAPECITABINE. [Suspect]
     Active Substance: CAPECITABINE
     Indication: HER-2 POSITIVE GASTRIC CANCER
     Dosage: LAST DOSE PRIOR TO SAE 08/JAN/2016?DOSE AS PER PROTOCOL:2000MG/M2D, D1-14, EVERY 3 WEEKS
     Route: 048
     Dates: start: 20151229, end: 20160108

REACTIONS (2)
  - Febrile neutropenia [Fatal]
  - White blood cell count decreased [Fatal]

NARRATIVE: CASE EVENT DATE: 20160108
